FAERS Safety Report 11800756 (Version 2)
Quarter: 2016Q3

REPORT INFORMATION
  Report Type: Spontaneous
  Country: JP (occurrence: JP)
  Receive Date: 20151204
  Receipt Date: 20160802
  Transmission Date: 20161109
  Serious: No
  Sender: FDA-Public Use
  Company Number: JP-GLENMARK PHARMACEUTICALS INC, USA.-2015GMK015006

PATIENT
  Age: 72 Year
  Sex: Female

DRUGS (1)
  1. PRAMIPEXOLE. [Suspect]
     Active Substance: PRAMIPEXOLE
     Indication: PARKINSON^S DISEASE
     Dosage: UNK

REACTIONS (1)
  - Hallucination, auditory [Unknown]
